FAERS Safety Report 8801186 (Version 1)
Quarter: 2012Q4

REPORT INFORMATION
  Report Type: Report from Study
  Country: US (occurrence: US)
  Receive Date: 20120921
  Receipt Date: 20120921
  Transmission Date: 20130627
  Serious: No
  Sender: FDA-Public Use
  Company Number: US-TEVA-359951USA

PATIENT
  Age: 88 Year
  Sex: Female
  Weight: 60.73 kg

DRUGS (15)
  1. TREANDA [Suspect]
     Indication: B-CELL LYMPHOMA
     Dosage: 145 mg,1 in 4 wk
     Route: 042
     Dates: start: 20120208
  2. OBINUTUZUMAB [Suspect]
     Indication: B-CELL LYMPHOMA
     Dosage: 250 mL,1 in 4 wk)
     Route: 042
     Dates: start: 20120208
  3. PREDNISONE [Suspect]
     Indication: B-CELL LYMPHOMA
     Dosage: 100 mg,1 in 3 wk
     Route: 048
     Dates: start: 20120208
  4. PANTOPRAZOLE SODIUM [Concomitant]
  5. PLAVIX [Concomitant]
  6. METOPROLOL TARTRATE [Concomitant]
  7. DETROL [Concomitant]
  8. LEXAPRO [Concomitant]
  9. HYDROCHLOROTHIAZIDE [Concomitant]
  10. DONEPEZIL HYDROCHLORIDE [Concomitant]
  11. TYLENOL [Concomitant]
  12. PEPCID [Concomitant]
  13. IMODIUM [Concomitant]
  14. NEULASTA [Concomitant]
  15. ALOXI [Concomitant]

REACTIONS (1)
  - Hyperuricaemia [Recovered/Resolved]
